FAERS Safety Report 9128647 (Version 2)
Quarter: 2013Q1

REPORT INFORMATION
  Report Type: Report from Study
  Country: CA (occurrence: CA)
  Receive Date: 20130228
  Receipt Date: 20130306
  Transmission Date: 20140127
  Serious: Yes (Other)
  Sender: FDA-Public Use
  Company Number: CA-ROCHE-1195053

PATIENT
  Sex: Male
  Weight: 83.9 kg

DRUGS (8)
  1. RITUXAN [Suspect]
     Indication: IDIOPATHIC THROMBOCYTOPENIC PURPURA
     Route: 042
     Dates: start: 20111014
  2. RITUXAN [Suspect]
     Route: 042
     Dates: start: 20111022
  3. RITUXAN [Suspect]
     Route: 042
     Dates: start: 20111028
  4. RITUXAN [Suspect]
     Route: 042
     Dates: start: 20111104
  5. ATENOLOL [Concomitant]
  6. AMLODIPINE [Concomitant]
  7. CRESTOR [Concomitant]
  8. LORAZEPAM [Concomitant]
     Route: 065

REACTIONS (1)
  - Aortic disorder [Not Recovered/Not Resolved]
